FAERS Safety Report 16781230 (Version 2)
Quarter: 2019Q3

REPORT INFORMATION
  Report Type: Spontaneous
  Country: GR (occurrence: GR)
  Receive Date: 20190906
  Receipt Date: 20190927
  Transmission Date: 20191005
  Serious: Yes (Other)
  Sender: FDA-Public Use
  Company Number: GR-MYLANLABS-2019M1083292

PATIENT
  Sex: Female

DRUGS (1)
  1. IBANDRONATE [Suspect]
     Active Substance: IBANDRONATE SODIUM
     Indication: PRODUCT USED FOR UNKNOWN INDICATION
     Dosage: 3 DOSAGE FORM, TOTAL (3 INJECTIONS)
     Dates: start: 200801, end: 200803

REACTIONS (2)
  - Periodontal disease [Recovering/Resolving]
  - Osteonecrosis of jaw [Recovered/Resolved]
